FAERS Safety Report 14875660 (Version 3)
Quarter: 2021Q2

REPORT INFORMATION
  Report Type: Spontaneous
  Country: ZA (occurrence: ZA)
  Receive Date: 20180510
  Receipt Date: 20210415
  Transmission Date: 20210716
  Serious: Yes (Hospitalization, Other)
  Sender: FDA-Public Use
  Company Number: ZA-SA-2018SA125032

PATIENT
  Age: 18 Year
  Sex: Female

DRUGS (3)
  1. ENBREL [Suspect]
     Active Substance: ETANERCEPT
     Indication: JUVENILE IDIOPATHIC ARTHRITIS
     Dosage: 50 MG,QW
     Route: 065
     Dates: start: 20140205
  2. CHLOROQUINE SULFATE [Suspect]
     Active Substance: CHLOROQUINE SULFATE
     Indication: JUVENILE IDIOPATHIC ARTHRITIS
     Dosage: 200 MG,QD
     Route: 065
     Dates: start: 2012
  3. ARAVA [Suspect]
     Active Substance: LEFLUNOMIDE
     Indication: JUVENILE IDIOPATHIC ARTHRITIS
     Dosage: 20 MG,QD
     Route: 048
     Dates: start: 2012

REACTIONS (4)
  - Bipolar disorder [Unknown]
  - Drug ineffective [Unknown]
  - Hypothyroidism [Unknown]
  - Psychotic disorder [Unknown]
